FAERS Safety Report 5779545-8 (Version None)
Quarter: 2008Q2

REPORT INFORMATION
  Report Type: 
  Country: None (occurrence: None)
  Receive Date: 20080617
  Receipt Date: 20080610
  Transmission Date: 20081010
  Serious: Yes (Other)
  Sender: FDA-Public Use
  Company Number: 82216

PATIENT
  Age: 55 Year
  Sex: Male
  Weight: 85 kg

DRUGS (3)
  1. LEMSIP        (COMBINATION PRODUCT) [Suspect]
     Indication: URINARY TRACT INFECTION
     Dosage: ORAL
     Route: 048
     Dates: start: 20060601
  2. LANSOPRAZOLE [Concomitant]
  3. ASPIRIN [Concomitant]

REACTIONS (4)
  - GASTRITIS [None]
  - HAEMATEMESIS [None]
  - OESOPHAGITIS [None]
  - VOMITING [None]
